FAERS Safety Report 11005026 (Version 2)
Quarter: 2015Q3

REPORT INFORMATION
  Report Type: Report from Study
  Country: US (occurrence: US)
  Receive Date: 20150409
  Receipt Date: 20150825
  Transmission Date: 20151125
  Serious: Yes (Other)
  Sender: FDA-Public Use
  Company Number: US-GILEAD-2015-0147780

PATIENT
  Age: 47 Year
  Sex: Male

DRUGS (2)
  1. AMBRISENTAN [Suspect]
     Active Substance: AMBRISENTAN
     Indication: PULMONARY ARTERIAL HYPERTENSION
     Dosage: 10 MG, QD
     Route: 065
     Dates: start: 20080913
  2. ADCIRCA [Concomitant]
     Active Substance: TADALAFIL
     Dosage: 10 UNK, UNK
     Route: 065

REACTIONS (1)
  - Cardiac pacemaker battery replacement [Unknown]
